FAERS Safety Report 15266928 (Version 1)
Quarter: 2018Q4

REPORT INFORMATION
  Report Type: Spontaneous
  Country: FR (occurrence: FR)
  Receive Date: 20180810
  Receipt Date: 20180810
  Transmission Date: 20190204
  Serious: No
  Sender: FDA-Public Use
  Company Number: FR-FRESENIUS KABI-FK201808641

PATIENT
  Sex: Female

DRUGS (1)
  1. CASPOFUNGIN ACETATE FOR INJECTION [Suspect]
     Active Substance: CASPOFUNGIN ACETATE
     Indication: PRODUCT USED FOR UNKNOWN INDICATION
     Dosage: UNKNOWN
     Route: 042

REACTIONS (1)
  - Eye disorder [Unknown]
